FAERS Safety Report 6532116-8 (Version None)
Quarter: 2010Q1

REPORT INFORMATION
  Report Type: 
  Country: None (occurrence: None)
  Receive Date: 20100107
  Receipt Date: 20100107
  Transmission Date: 20100710
  Serious: No
  Sender: FDA-Public Use
  Company Number: None

PATIENT
  Age: 36 Year
  Sex: Male

DRUGS (1)
  1. TRAMADOL [Suspect]
     Dates: start: 20090914

REACTIONS (4)
  - CONVULSION [None]
  - JOINT INJURY [None]
  - MUSCULOSKELETAL PAIN [None]
  - PAIN [None]
